FAERS Safety Report 8578140-5 (Version None)
Quarter: 2012Q3

REPORT INFORMATION
  Report Type: 
  Country: None (occurrence: None)
  Receive Date: 20120808
  Receipt Date: 20120731
  Transmission Date: 20120928
  Serious: Yes (Other)
  Sender: FDA-Public Use
  Company Number: US-SANOFI-AVENTIS-2012SA045113

PATIENT
  Age: 57 Year
  Sex: Male
  Weight: 100 kg

DRUGS (7)
  1. LANTUS [Suspect]
     Indication: TYPE 2 DIABETES MELLITUS
     Dosage: DOSE:57 UNIT(S)
     Route: 058
     Dates: start: 20040101
  2. SOLOSTAR [Suspect]
     Indication: TYPE 2 DIABETES MELLITUS
     Dates: start: 20120412
  3. FLUDARABINE PHOSPHATE [Concomitant]
     Dosage: 72 INFUSIONS
  4. LANTUS [Suspect]
     Dosage: DOSE:50 UNIT(S)
     Route: 058
     Dates: start: 20120412
  5. NOVOLOG [Concomitant]
     Dates: start: 20040101
  6. METFORMIN HYDROCHLORIDE [Concomitant]
  7. BACTRIM [Concomitant]

REACTIONS (3)
  - DRUG INEFFECTIVE [None]
  - LEUKAEMIA [None]
  - BLOOD GLUCOSE INCREASED [None]
